FAERS Safety Report 19854300 (Version 1)
Quarter: 2021Q3

REPORT INFORMATION
  Report Type: Spontaneous
  Country: CA (occurrence: CA)
  Receive Date: 20210920
  Receipt Date: 20210920
  Transmission Date: 20211014
  Serious: Yes (Hospitalization, Other)
  Sender: FDA-Public Use
  Company Number: CA-COVIS PHARMA GMBH-2021COV19158

PATIENT
  Age: 21 Year
  Sex: Female

DRUGS (5)
  1. SYMBICORT [Suspect]
     Active Substance: BUDESONIDE\FORMOTEROL FUMARATE DIHYDRATE
     Indication: PRODUCT USED FOR UNKNOWN INDICATION
     Route: 055
  2. SPIRIVA [Suspect]
     Active Substance: TIOTROPIUM BROMIDE MONOHYDRATE
     Indication: PRODUCT USED FOR UNKNOWN INDICATION
     Route: 065
  3. ALVESCO [Suspect]
     Active Substance: CICLESONIDE
     Indication: PRODUCT USED FOR UNKNOWN INDICATION
     Route: 055
  4. PREDNISONE. [Suspect]
     Active Substance: PREDNISONE
     Indication: PRODUCT USED FOR UNKNOWN INDICATION
     Route: 065
  5. SALBUTAMOL SULFATE [Suspect]
     Active Substance: ALBUTEROL SULFATE
     Indication: PRODUCT USED FOR UNKNOWN INDICATION
     Route: 065

REACTIONS (11)
  - Pneumonia [Unknown]
  - Exposure during pregnancy [Unknown]
  - Wheezing [Unknown]
  - Maternal exposure during pregnancy [Unknown]
  - Asthma [Unknown]
  - Sleep disorder due to a general medical condition [Unknown]
  - Therapeutic product effect incomplete [Unknown]
  - Blood count abnormal [Unknown]
  - Dyspnoea [Unknown]
  - Loss of personal independence in daily activities [Unknown]
  - Therapeutic response decreased [Unknown]
